FAERS Safety Report 8847559 (Version 1)
Quarter: 2012Q4

REPORT INFORMATION
  Report Type: 
  Country: US (occurrence: US)
  Receive Date: 20121018
  Receipt Date: 20121018
  Transmission Date: 20130627
  Serious: No
  Sender: FDA-Public Use
  Company Number: US-MYLANLABS-2011S1023456

PATIENT
  Age: 95 Year
  Sex: Female

DRUGS (3)
  1. RISPERIDONE [Suspect]
     Route: 048
     Dates: start: 20111021, end: 20111022
  2. FOLIC ACID [Concomitant]
  3. IRON [Concomitant]

REACTIONS (2)
  - Dizziness [Recovered/Resolved]
  - Nausea [Recovered/Resolved]
